FAERS Safety Report 9827493 (Version 1)
Quarter: 2014Q1

REPORT INFORMATION
  Report Type: Spontaneous
  Country: CN (occurrence: CN)
  Receive Date: 20140117
  Receipt Date: 20140117
  Transmission Date: 20141002
  Serious: Yes (Other)
  Sender: FDA-Public Use
  Company Number: CN-009507513-1401JPN006001

PATIENT
  Age: 25 Year
  Sex: Male

DRUGS (8)
  1. FAMOTIDINE [Suspect]
     Indication: ABDOMINAL PAIN
     Dosage: 20 MG, UNK
     Route: 048
  2. FAMOTIDINE [Suspect]
     Indication: ABDOMINAL PAIN
     Dosage: 20 MG, UNK
     Route: 041
  3. CASCARA SAGRADA [Concomitant]
  4. BISMUTH SUBNITRATE [Concomitant]
     Dosage: UNK, BID
     Route: 048
  5. MAGNESIUM CARBONATE [Concomitant]
     Dosage: UNK, BID
     Route: 048
  6. LEVOFLOXACIN [Concomitant]
  7. SODIUM CHLORIDE [Concomitant]
  8. GLUCUROLACTONE [Concomitant]

REACTIONS (1)
  - Liver injury [Unknown]
